FAERS Safety Report 21477390 (Version 10)
Quarter: 2025Q3

REPORT INFORMATION
  Report Type: Report from Study
  Country: AU (occurrence: AU)
  Receive Date: 20221019
  Receipt Date: 20250826
  Transmission Date: 20251021
  Serious: Yes (Hospitalization, Disabling, Other)
  Sender: ROCHE
  Company Number: AU-ROCHE-3077899

PATIENT
  Age: 63 Year
  Sex: Female
  Weight: 164 kg

DRUGS (12)
  1. OCRELIZUMAB [Suspect]
     Active Substance: OCRELIZUMAB
     Indication: Multiple sclerosis
     Route: 042
     Dates: start: 20220413, end: 20220413
  2. OCRELIZUMAB [Suspect]
     Active Substance: OCRELIZUMAB
     Route: 042
  3. OCRELIZUMAB [Suspect]
     Active Substance: OCRELIZUMAB
     Route: 042
  4. OCRELIZUMAB [Suspect]
     Active Substance: OCRELIZUMAB
     Route: 042
  5. OCRELIZUMAB [Suspect]
     Active Substance: OCRELIZUMAB
     Route: 042
  6. OCRELIZUMAB [Suspect]
     Active Substance: OCRELIZUMAB
     Route: 042
  7. OCRELIZUMAB [Suspect]
     Active Substance: OCRELIZUMAB
     Route: 042
     Dates: start: 2021
  8. OCRELIZUMAB [Suspect]
     Active Substance: OCRELIZUMAB
     Route: 042
  9. JARDIANCE [Concomitant]
     Active Substance: EMPAGLIFLOZIN
  10. KOMBIGLYZE XR [Concomitant]
     Active Substance: METFORMIN HYDROCHLORIDE\SAXAGLIPTIN HYDROCHLORIDE
     Dosage: XR 2.5 MG/1000 MG MODIFIED RELEASE TABLETS (2.5 MG/1000 MG) MODIFIED RELEASE TABLETS DOSE: AMT: 1; F
  11. PERINDOPRIL [Concomitant]
     Active Substance: PERINDOPRIL
     Dosage: 8 MG TABLETS DOSE: AMT: 1; FREQ: AM
  12. ZOLOFT [Concomitant]
     Active Substance: SERTRALINE HYDROCHLORIDE
     Dosage: TABLETS 100 MG?TABLETS DOSE: AMT: 1;?FREQ: PM

REACTIONS (21)
  - Infusion related reaction [Recovered/Resolved with Sequelae]
  - Urinary tract infection [Recovered/Resolved]
  - Chest discomfort [Recovered/Resolved]
  - Throat irritation [Recovered/Resolved]
  - Blood pressure increased [Unknown]
  - Multiple sclerosis [Not Recovered/Not Resolved]
  - Dizziness [Recovered/Resolved with Sequelae]
  - Fall [Unknown]
  - Fatigue [Recovered/Resolved]
  - Muscle spasms [Recovered/Resolved]
  - Nausea [Recovered/Resolved]
  - Vomiting [Recovered/Resolved]
  - Hypersensitivity [Recovered/Resolved]
  - General physical health deterioration [Unknown]
  - COVID-19 pneumonia [Recovered/Resolved]
  - Mobility decreased [Recovering/Resolving]
  - Urinary tract infection [Recovered/Resolved]
  - Fatigue [Recovered/Resolved]
  - Headache [Recovered/Resolved]
  - Off label use [Unknown]
  - Mobility decreased [Unknown]

NARRATIVE: CASE EVENT DATE: 20220413
